FAERS Safety Report 15585225 (Version 2)
Quarter: 2021Q4

REPORT INFORMATION
  Report Type: Spontaneous
  Country: US (occurrence: US)
  Receive Date: 20181105
  Receipt Date: 20211102
  Transmission Date: 20220303
  Serious: Yes (Hospitalization, Disabling)
  Sender: FDA-Public Use
  Company Number: US-TEVA-2018-US-971660

PATIENT
  Age: 61 Year
  Sex: Female

DRUGS (19)
  1. DOCETAXEL [Suspect]
     Active Substance: DOCETAXEL
     Indication: Invasive ductal breast carcinoma
     Dosage: 6 CYCLES, EVERY THREE WEEKS, DOSAGE:150MG
     Route: 042
     Dates: start: 20140227, end: 20140612
  2. DOCETAXEL [Suspect]
     Active Substance: DOCETAXEL
     Dosage: 6 CYCLES, EVERY THREE WEEKS, DOSAGE:150MG
     Route: 042
     Dates: start: 20140227, end: 20140612
  3. DOCETAXEL [Suspect]
     Active Substance: DOCETAXEL
     Dosage: 6 CYCLES, EVERY THREE WEEKS, DOSAGE:150MG
     Route: 042
     Dates: start: 20140227, end: 20140612
  4. DOCETAXEL [Suspect]
     Active Substance: DOCETAXEL
     Indication: Invasive ductal breast carcinoma
     Dosage: 6 CYCLES, EVERY THREE WEEKS, DOSAGE:150MG
     Route: 042
     Dates: start: 20140227, end: 20140612
  5. CYCLOPHOSPHAMIDE [Suspect]
     Active Substance: CYCLOPHOSPHAMIDE
     Indication: Invasive ductal breast carcinoma
     Dosage: 6 CYCLES, EVERY THREE WEEKS
     Route: 042
     Dates: start: 20140227, end: 20140612
  6. ATORVASTATIN [Concomitant]
     Active Substance: ATORVASTATIN
     Route: 048
     Dates: start: 2007
  7. DOCUSATE [Concomitant]
     Active Substance: DOCUSATE
     Route: 048
     Dates: start: 2007
  8. LEVOTHYROXINE [Concomitant]
     Active Substance: LEVOTHYROXINE
     Indication: Hypothyroidism
     Route: 048
     Dates: start: 2007
  9. VENLAFAXINE [Concomitant]
     Active Substance: VENLAFAXINE HYDROCHLORIDE
     Route: 048
     Dates: start: 1998
  10. METOPROLOL SUCCINATE [Concomitant]
     Active Substance: METOPROLOL SUCCINATE
     Indication: Essential hypertension
     Route: 048
  11. IBUPROFEN [Concomitant]
     Active Substance: IBUPROFEN
     Indication: Pain
     Route: 048
  12. LORATADINE [Concomitant]
     Active Substance: LORATADINE
     Route: 048
  13. LORAZEPAM [Concomitant]
     Active Substance: LORAZEPAM
     Indication: Prophylaxis
     Dosage: TAKE 0.5-1 TABS BY MOUTH EVERY 6 HOURS AS NEEDED FOR
     Route: 048
  14. PEGFILGRASTIM [Concomitant]
     Active Substance: PEGFILGRASTIM
     Indication: Chemotherapy side effect prophylaxis
  15. DEXAMETHASONE [Concomitant]
     Active Substance: DEXAMETHASONE
     Indication: Chemotherapy side effect prophylaxis
     Dosage: 8MG (4MGX2) BID DAY BEFORE CHEMO, 8MG THE MORNING OF CHEMO. 8MG ONCE IN AM WITH FOOD ON DAYS 2,3,4
     Route: 048
  16. PALONOSETRON [Concomitant]
     Active Substance: PALONOSETRON
     Indication: Chemotherapy side effect prophylaxis
     Route: 042
  17. FAMOTIDINE [Concomitant]
     Active Substance: FAMOTIDINE
     Indication: Chemotherapy side effect prophylaxis
  18. DIPHENHYDRAMINE [Concomitant]
     Active Substance: DIPHENHYDRAMINE
     Indication: Chemotherapy side effect prophylaxis
     Dosage: PRIOR TO CHEMO ON DAY 1
     Route: 042
  19. NAPROXEN SODIUM [Concomitant]
     Active Substance: NAPROXEN SODIUM
     Route: 048

REACTIONS (22)
  - Superficial vein thrombosis [Recovered/Resolved]
  - Alopecia areata [Not Recovered/Not Resolved]
  - Madarosis [Not Recovered/Not Resolved]
  - Hair texture abnormal [Not Recovered/Not Resolved]
  - Hair colour changes [Not Recovered/Not Resolved]
  - Stomatitis [Recovered/Resolved]
  - Nausea [Recovered/Resolved]
  - Erythema [Recovered/Resolved]
  - Dry mouth [Recovered/Resolved]
  - Vomiting [Recovered/Resolved]
  - Diarrhoea [Recovered/Resolved]
  - Peripheral motor neuropathy [Unknown]
  - Painful respiration [Recovered/Resolved]
  - Flushing [Recovered/Resolved]
  - Paraesthesia oral [Recovered/Resolved]
  - Tongue discolouration [Recovered/Resolved]
  - Decreased appetite [Recovered/Resolved]
  - Dehydration [Recovered/Resolved]
  - Hypophagia [Recovered/Resolved]
  - Fatigue [Recovered/Resolved]
  - Onychalgia [Not Recovered/Not Resolved]
  - Vitreous floaters [Not Recovered/Not Resolved]

NARRATIVE: CASE EVENT DATE: 20140101
